FAERS Safety Report 10380434 (Version 1)
Quarter: 2014Q1

REPORT INFORMATION
  Report Type: Spontaneous
  Country: US (occurrence: None)
  Receive Date: 20140306
  Receipt Date: 20140306
  Transmission Date: 20141002
  Serious: Yes (Hospitalization)
  Sender: FDA-Public Use
  Company Number: 163-21880-13113840

PATIENT
  Age: 72 Year
  Sex: Female

DRUGS (5)
  1. REVLIMID (LENALIDOMIDE) (CAPSULES) [Suspect]
     Indication: MYELOFIBROSIS
     Dosage: 15 MG, 21 IN 21 D, PO
     Route: 048
     Dates: start: 20131025
  2. SIMETHICONE(DIMETICONE, ACTIVATED) [Concomitant]
  3. MULTIVITAMINS(MULTIVITAMINS) [Concomitant]
  4. LOMOTIL(LOMOTIL) [Concomitant]
  5. ATORVASTATIN CALCIUM(ATORVASTATIN CALCIUM) [Concomitant]

REACTIONS (1)
  - Diarrhoea [None]
